FAERS Safety Report 8082800-2 (Version None)
Quarter: 2012Q1

REPORT INFORMATION
  Report Type: 
  Country: None (occurrence: None)
  Receive Date: 20120127
  Receipt Date: 20110211
  Transmission Date: 20120608
  Serious: No
  Sender: FDA-Public Use
  Company Number: US-ABBOTT-11P-163-0705041-00

PATIENT
  Age: 54 Year
  Sex: Male

DRUGS (2)
  1. HUMIRA [Suspect]
     Indication: PSORIATIC ARTHROPATHY
  2. HUMIRA [Suspect]
     Indication: PSORIASIS
     Dosage: START 40MG-4DAYS LATER 40MG
     Dates: start: 20110128

REACTIONS (5)
  - PAIN [None]
  - PSORIASIS [None]
  - PRURITUS [None]
  - DRUG PRESCRIBING ERROR [None]
  - SKIN DISCOLOURATION [None]
